FAERS Safety Report 20500365 (Version 1)
Quarter: 2022Q1

REPORT INFORMATION
  Report Type: Report from Study
  Country: US (occurrence: US)
  Receive Date: 20220222
  Receipt Date: 20220222
  Transmission Date: 20220424
  Serious: No
  Sender: FDA-Public Use
  Company Number: US-NOVARTISTESTPH-NVSC2022US038182

PATIENT
  Sex: Female

DRUGS (1)
  1. DUREZOL [Suspect]
     Active Substance: DIFLUPREDNATE
     Indication: Surgery
     Dosage: 1 GTT (DROP) 0.05%, FOUR TIMES A DAY
     Route: 047
     Dates: start: 20211208, end: 20220208

REACTIONS (1)
  - Intraocular pressure increased [Recovered/Resolved]
